FAERS Safety Report 9009649 (Version 3)
Quarter: 2013Q3

REPORT INFORMATION
  Report Type: Report from Study
  Country: FR (occurrence: FR)
  Receive Date: 20130110
  Receipt Date: 20130703
  Transmission Date: 20140515
  Serious: Yes (Hospitalization, Other)
  Sender: FDA-Public Use
  Company Number: FR-ROCHE-1136307

PATIENT
  Age: 76 Year
  Sex: Female
  Weight: 52 kg

DRUGS (29)
  1. TOCILIZUMAB [Suspect]
     Indication: RHEUMATOID ARTHRITIS
     Route: 042
     Dates: start: 20110801
  2. TOCILIZUMAB [Suspect]
     Route: 042
     Dates: start: 20111110
  3. TOCILIZUMAB [Suspect]
     Route: 042
     Dates: start: 20111208
  4. TOCILIZUMAB [Suspect]
     Route: 042
     Dates: start: 20120105
  5. TOCILIZUMAB [Suspect]
     Route: 042
     Dates: start: 20120202
  6. TOCILIZUMAB [Suspect]
     Route: 042
     Dates: start: 20110914
  7. TOCILIZUMAB [Suspect]
     Route: 042
     Dates: start: 20111012
  8. TOCILIZUMAB [Suspect]
     Route: 042
     Dates: start: 20120419
  9. TOCILIZUMAB [Suspect]
     Route: 042
     Dates: start: 20120522
  10. TOCILIZUMAB [Suspect]
     Route: 042
     Dates: start: 20120625
  11. TOCILIZUMAB [Suspect]
     Route: 042
     Dates: start: 20120724
  12. TOCILIZUMAB [Suspect]
     Route: 042
     Dates: start: 20120821
  13. TOCILIZUMAB [Suspect]
     Route: 042
     Dates: start: 20120918
  14. TOCILIZUMAB [Suspect]
     Route: 042
     Dates: start: 20121016
  15. TOCILIZUMAB [Suspect]
     Route: 042
     Dates: start: 20121114
  16. TOCILIZUMAB [Suspect]
     Route: 042
     Dates: start: 20121213
  17. TOCILIZUMAB [Suspect]
     Route: 042
     Dates: start: 20130110
  18. TOCILIZUMAB [Suspect]
     Route: 042
     Dates: start: 20130212
  19. TOCILIZUMAB [Suspect]
     Route: 042
     Dates: start: 20130403
  20. PREDNISONE [Concomitant]
     Route: 048
  21. PREDNISONE [Concomitant]
     Dosage: DAILY
     Route: 065
  22. CALDINE (FRANCE) [Concomitant]
     Route: 065
  23. DAFALGAN [Concomitant]
     Route: 065
  24. RIVOTRIL [Concomitant]
     Dosage: 8 DROPS/DAY
     Route: 065
  25. STILNOX [Concomitant]
     Route: 065
  26. LEVOTHYROX [Concomitant]
     Route: 065
  27. DICETEL [Concomitant]
     Route: 065
  28. PRAVASTATINE [Concomitant]
     Route: 065
  29. DUROGESIC [Concomitant]
     Dosage: 1/DAY
     Route: 065

REACTIONS (4)
  - Calculus urinary [Recovered/Resolved]
  - Anuria [Recovered/Resolved]
  - Pyelonephritis [Recovered/Resolved]
  - Fall [Unknown]
